FAERS Safety Report 19371297 (Version 1)
Quarter: 2021Q2

REPORT INFORMATION
  Report Type: Spontaneous
  Country: US (occurrence: US)
  Receive Date: 20210603
  Receipt Date: 20210603
  Transmission Date: 20210717
  Serious: No
  Sender: FDA-Public Use
  Company Number: US-SA-2021SA181077

PATIENT
  Age: 67 Year
  Sex: Female
  Weight: 61.22 kg

DRUGS (2)
  1. DUPIXENT [Suspect]
     Active Substance: DUPILUMAB
     Indication: ASTHMA
     Dosage: 600 MG, 1X
     Route: 058
     Dates: start: 20210521, end: 20210521
  2. NUCALA [Concomitant]
     Active Substance: MEPOLIZUMAB

REACTIONS (3)
  - Tinea infection [Unknown]
  - Skin discolouration [Unknown]
  - Product use issue [Unknown]

NARRATIVE: CASE EVENT DATE: 20210521
